FAERS Safety Report 9938923 (Version 1)
Quarter: 2014Q1

REPORT INFORMATION
  Report Type: Report from Study
  Country: US (occurrence: US)
  Receive Date: 20140303
  Receipt Date: 20140303
  Transmission Date: 20141002
  Serious: No
  Sender: FDA-Public Use
  Company Number: US-ABBVIE-13P-163-1036819-00

PATIENT
  Age: 49 Year
  Sex: Female

DRUGS (3)
  1. HUMIRA [Suspect]
     Indication: RHEUMATOID ARTHRITIS
     Route: 058
  2. NAPROSYN [Concomitant]
     Indication: PRODUCT USED FOR UNKNOWN INDICATION
  3. VALTREX [Concomitant]

REACTIONS (4)
  - Incorrect dose administered [Recovered/Resolved]
  - Injection site pain [Recovered/Resolved]
  - Injection site mass [Recovered/Resolved]
  - Injection site haemorrhage [Recovered/Resolved]
